FAERS Safety Report 5893306-0 (Version None)
Quarter: 2008Q3

REPORT INFORMATION
  Report Type: 
  Country: None (occurrence: None)
  Receive Date: 20080923
  Receipt Date: 20080916
  Transmission Date: 20090109
  Serious: Yes (Other)
  Sender: FDA-Public Use
  Company Number: B0526865A

PATIENT
  Sex: Female

DRUGS (1)
  1. LAMITRIN [Suspect]
     Indication: EPILEPSY
     Dosage: 125MG PER DAY
     Route: 065

REACTIONS (8)
  - ABDOMINAL PAIN UPPER [None]
  - DIZZINESS [None]
  - EMOTIONAL DISORDER [None]
  - EPILEPSY [None]
  - EPILEPTIC AURA [None]
  - HEADACHE [None]
  - HYPOAESTHESIA FACIAL [None]
  - HYPOAESTHESIA ORAL [None]
